FAERS Safety Report 9637481 (Version 2)
Quarter: 2014Q1

REPORT INFORMATION
  Report Type: Spontaneous
  Country: GB (occurrence: GB)
  Receive Date: 20131022
  Receipt Date: 20140324
  Transmission Date: 20141002
  Serious: Yes (Death, Other)
  Sender: FDA-Public Use
  Company Number: GB-JNJFOC-20131012412

PATIENT
  Age: 70 Year
  Sex: Male
  Weight: 80 kg

DRUGS (7)
  1. XARELTO [Suspect]
     Indication: EMBOLISM VENOUS
     Route: 048
     Dates: start: 20130905, end: 20130907
  2. XARELTO [Suspect]
     Indication: DEEP VEIN THROMBOSIS
     Route: 048
     Dates: start: 20130905, end: 20130907
  3. CO-CODAMOL [Concomitant]
     Route: 048
     Dates: start: 20130903
  4. CLEXANE [Concomitant]
     Indication: THROMBOSIS PROPHYLAXIS
     Route: 058
     Dates: start: 20130716, end: 20130828
  5. CLEXANE [Concomitant]
     Indication: THROMBOSIS PROPHYLAXIS
     Route: 058
  6. CLEXANE [Concomitant]
     Indication: HIP SURGERY
     Route: 058
     Dates: start: 20130716, end: 20130828
  7. CLEXANE [Concomitant]
     Indication: HIP SURGERY
     Route: 058

REACTIONS (2)
  - Pulmonary embolism [Fatal]
  - Syncope [Not Recovered/Not Resolved]
